FAERS Safety Report 4324567-7 (Version None)
Quarter: 2004Q1

REPORT INFORMATION
  Report Type: 
  Country: None (occurrence: None)
  Receive Date: 20040322
  Receipt Date: 20040310
  Transmission Date: 20041129
  Serious: Yes (Hospitalization)
  Sender: FDA-Public Use
  Company Number: FR-JNJFOC-20040302680

PATIENT
  Age: 58 Year
  Sex: Male
  Weight: 70 kg

DRUGS (3)
  1. REMICADE [Suspect]
     Indication: RHEUMATOID ARTHRITIS
     Dosage: 230 MG, INTRAVENOUS
     Route: 042
     Dates: start: 20030826, end: 20031208
  2. NOVATREX (METHOTREXATE) UNKNOWN [Suspect]
     Indication: RHEUMATOID ARTHRITIS
     Dosage: 5 MG, 1 IN 1 DAY, ORAL
     Route: 048
     Dates: start: 20030826, end: 20040121
  3. FOLIC ACID [Concomitant]

REACTIONS (1)
  - TUBERCULOSIS [None]
